FAERS Safety Report 6187807-8 (Version None)
Quarter: 2009Q2

REPORT INFORMATION
  Report Type: 
  Country: None (occurrence: None)
  Receive Date: 20090513
  Receipt Date: 20090503
  Transmission Date: 20091009
  Serious: No
  Sender: FDA-Public Use
  Company Number: IL-ELI_LILLY_AND_COMPANY-IL200904004650

PATIENT
  Age: 60 Year
  Sex: Female

DRUGS (1)
  1. BYETTA [Suspect]
     Indication: DIABETES MELLITUS
     Dosage: UNK, UNKNOWN
     Route: 065

REACTIONS (5)
  - EMOTIONAL DISTRESS [None]
  - HYPERTENSION [None]
  - NAUSEA [None]
  - PANIC DISORDER [None]
  - VOMITING [None]
